FAERS Safety Report 7443702-5 (Version None)
Quarter: 2011Q2

REPORT INFORMATION
  Report Type: 
  Country: None (occurrence: None)
  Receive Date: 20110428
  Receipt Date: 20110422
  Transmission Date: 20111010
  Serious: Yes (Other)
  Sender: FDA-Public Use
  Company Number: US-PFIZER INC-2011087665

PATIENT
  Age: 61 Year
  Sex: Male

DRUGS (2)
  1. LIPITOR [Suspect]
  2. AMITRAZ [Suspect]
     Route: 055

REACTIONS (2)
  - EYE HAEMORRHAGE [None]
  - EYE SWELLING [None]
